FAERS Safety Report 8634351 (Version 2)
Quarter: 2013Q1

REPORT INFORMATION
  Report Type: Spontaneous
  Country: CA (occurrence: None)
  Receive Date: 20120530
  Receipt Date: 20121213
  Transmission Date: 20140127
  Serious: Yes (Hospitalization, Other)
  Sender: FDA-Public Use
  Company Number: 2012031438

PATIENT
  Age: 66 Year
  Sex: Male

DRUGS (2)
  1. PRIVIGEN [Suspect]
     Dosage: INTRAVENOUS (NOT OTHERWISE SPECIFIED)
     Route: 042
     Dates: start: 20120207, end: 20120211
  2. PRIVIGEN [Suspect]

REACTIONS (3)
  - OFF LABEL USE [None]
  - DELAYED HAEMOLYTIC TRANSFUSION REACTION [None]
  - ANAEMIA [None]
